FAERS Safety Report 26207672 (Version 1)
Quarter: 2025Q4

REPORT INFORMATION
  Report Type: Spontaneous
  Country: EU (occurrence: EU)
  Receive Date: 20251229
  Receipt Date: 20251229
  Transmission Date: 20260118
  Serious: Yes (Life-Threatening, Hospitalization, Other)
  Sender: BRISTOL-MYERS SQUIBB COMPANY
  Company Number: EU-IPSEN Group, Research and Development-2025-30970

PATIENT
  Age: 62 Year
  Sex: Male

DRUGS (6)
  1. OPDIVO [Suspect]
     Active Substance: NIVOLUMAB
     Indication: Product used for unknown indication
     Dosage: 240 MG EVERY 14 DAYS
     Route: 042
     Dates: start: 20241008, end: 20250915
  2. OPDIVO [Suspect]
     Active Substance: NIVOLUMAB
     Route: 042
  3. CABOMETYX [Suspect]
     Active Substance: CABOZANTINIB S-MALATE
     Indication: Lung carcinoma cell type unspecified stage IV
     Dosage: 40 MG/D? (DAY)
     Route: 048
     Dates: start: 20241008, end: 20250928
  4. CABOMETYX [Suspect]
     Active Substance: CABOZANTINIB S-MALATE
  5. HYDROXYUREA [Suspect]
     Active Substance: HYDROXYUREA
     Indication: Myelofibrosis
     Dates: start: 2017, end: 20250211
  6. XARELTO [Concomitant]
     Active Substance: RIVAROXABAN
     Indication: Factor V Leiden mutation
     Dosage: 20 MG/D? (DAY)

REACTIONS (4)
  - Pulmonary infarction [Recovered/Resolved with Sequelae]
  - Pulmonary embolism [Recovered/Resolved with Sequelae]
  - Dysgeusia [Unknown]
  - Decreased appetite [Unknown]

NARRATIVE: CASE EVENT DATE: 20250929
